FAERS Safety Report 24583214 (Version 1)
Quarter: 2024Q4

REPORT INFORMATION
  Report Type: Spontaneous
  Country: US (occurrence: US)
  Receive Date: 20241106
  Receipt Date: 20241106
  Transmission Date: 20250114
  Serious: No
  Sender: ROCHE
  Company Number: US-ROCHE-10000120264

PATIENT
  Sex: Female
  Weight: 69.71 kg

DRUGS (1)
  1. OCREVUS [Suspect]
     Active Substance: OCRELIZUMAB
     Indication: Multiple sclerosis
     Dosage: LAST OCREVUS DOSE ON 05-JUN-2024.
     Route: 042
     Dates: start: 20220429

REACTIONS (1)
  - Maternal exposure before pregnancy [Unknown]
